FAERS Safety Report 10093131 (Version 1)
Quarter: 2014Q2

REPORT INFORMATION
  Report Type: Spontaneous
  Country: US (occurrence: US)
  Receive Date: 20140421
  Receipt Date: 20140421
  Transmission Date: 20141212
  Serious: No
  Sender: FDA-Public Use
  Company Number: US-SA-2013SA117631

PATIENT
  Age: 66 Year
  Sex: Female

DRUGS (12)
  1. ALLEGRA [Suspect]
     Route: 065
  2. ZYRTEC [Concomitant]
  3. RANITIDINE [Concomitant]
  4. MIRTAZAPINE [Concomitant]
     Route: 065
  5. HYDROCHLOROTHIAZIDE [Concomitant]
     Route: 065
  6. LISINOPRIL [Concomitant]
     Dosage: 25 MG/12.5 MG ALTERNATIVELY
     Route: 065
  7. ZOMETA [Concomitant]
     Dosage: DOSE: 4 MG TWICE YEARLY
     Route: 065
  8. LANSOPRAZOLE [Concomitant]
     Route: 065
  9. VITAMIN D [Concomitant]
     Dosage: DOSE:2400 UNIT(S)
     Route: 065
  10. CALCIUM CITRATE [Concomitant]
     Route: 065
  11. VAGIFEM [Concomitant]
     Route: 065
  12. CEREZYME [Concomitant]

REACTIONS (1)
  - Drug ineffective [Unknown]
